FAERS Safety Report 17937417 (Version 1)
Quarter: 2020Q2

REPORT INFORMATION
  Report Type: Spontaneous
  Country: US (occurrence: US)
  Receive Date: 20200624
  Receipt Date: 20200624
  Transmission Date: 20200714
  Serious: No
  Sender: FDA-Public Use
  Company Number: US-GALDERMA-US2020025244

PATIENT
  Age: 82 Year
  Sex: Female

DRUGS (1)
  1. DIFFERIN GEL [Suspect]
     Active Substance: ADAPALENE
     Indication: SOLAR LENTIGO
     Dosage: 0.1%
     Route: 061
     Dates: start: 20200517, end: 20200520

REACTIONS (3)
  - Erythema [Not Recovered/Not Resolved]
  - Eyelid pain [Recovered/Resolved]
  - Intentional product misuse [Recovered/Resolved]

NARRATIVE: CASE EVENT DATE: 20200517
